FAERS Safety Report 5387559-5 (Version None)
Quarter: 2007Q3

REPORT INFORMATION
  Report Type: 
  Country: None (occurrence: None)
  Receive Date: 20070716
  Receipt Date: 20070706
  Transmission Date: 20080115
  Serious: Yes (Hospitalization)
  Sender: FDA-Public Use
  Company Number: US-AMGEN-STX233039

PATIENT
  Sex: Female
  Weight: 90.8 kg

DRUGS (1)
  1. ENBREL [Suspect]
     Indication: PSORIATIC ARTHROPATHY
     Route: 058
     Dates: start: 20040901

REACTIONS (6)
  - FALL [None]
  - INJECTION SITE PAIN [None]
  - PNEUMONIA [None]
  - PSORIASIS [None]
  - SPINAL FRACTURE [None]
  - UPPER LIMB FRACTURE [None]
